FAERS Safety Report 6078696-0 (Version None)
Quarter: 2009Q1

REPORT INFORMATION
  Report Type: 
  Country: None (occurrence: None)
  Receive Date: 20090216
  Receipt Date: 20090206
  Transmission Date: 20090719
  Serious: Yes (Hospitalization, Other)
  Sender: FDA-Public Use
  Company Number: US-AMGEN-QUU330686

PATIENT
  Sex: Female
  Weight: 49.1 kg

DRUGS (2)
  1. ENBREL [Suspect]
     Indication: RHEUMATOID ARTHRITIS
     Route: 058
     Dates: start: 20080530
  2. METHOTREXATE [Suspect]
     Route: 048
     Dates: start: 20071001

REACTIONS (10)
  - BACK PAIN [None]
  - BALANCE DISORDER [None]
  - CYSTITIS [None]
  - FALL [None]
  - HAEMATOMA [None]
  - INJECTION SITE PAIN [None]
  - LOWER RESPIRATORY TRACT INFECTION [None]
  - NASOPHARYNGITIS [None]
  - OSTEOARTHRITIS [None]
  - WEIGHT DECREASED [None]
